FAERS Safety Report 12600355 (Version 2)
Quarter: 2020Q1

REPORT INFORMATION
  Report Type: Spontaneous
  Country: JP (occurrence: JP)
  Receive Date: 20160727
  Receipt Date: 20200108
  Transmission Date: 20200409
  Serious: Yes (Other)
  Sender: FDA-Public Use
  Company Number: JP-BAUSCH-BL-2016-018003

PATIENT
  Age: 56 Year
  Sex: Male
  Weight: 88.3 kg

DRUGS (4)
  1. RIBAVIRIN. [Suspect]
     Active Substance: RIBAVIRIN
     Dosage: SOFOSBUVIR PLUS RIBAVIRIN FOR 12 WEEKS
     Route: 048
  2. RIBAVIRIN. [Suspect]
     Active Substance: RIBAVIRIN
     Indication: CHRONIC HEPATITIS C
     Dosage: SOFOSBUVIR PLUS RIBAVIRIN FOR 12 WEEKS
     Route: 048
  3. RIBAVIRIN. [Suspect]
     Active Substance: RIBAVIRIN
     Dosage: SOFOSBUVIR PLUS RIBAVIRIN FOR 12 WEEKS
     Route: 048
  4. SOFOSBUVIR [Suspect]
     Active Substance: SOFOSBUVIR
     Indication: CHRONIC HEPATITIS C
     Dosage: SOFOSBUVIR PLUS RIBAVIRIN FOR 12 WEEKS
     Route: 048

REACTIONS (1)
  - Diarrhoea haemorrhagic [Recovered/Resolved]
